FAERS Safety Report 19013511 (Version 4)
Quarter: 2021Q2

REPORT INFORMATION
  Report Type: Spontaneous
  Country: IT (occurrence: IT)
  Receive Date: 20210315
  Receipt Date: 20210607
  Transmission Date: 20210717
  Serious: Yes (Hospitalization, Other)
  Sender: FDA-Public Use
  Company Number: IT-ORGANON-O2103ITA001230

PATIENT
  Age: 26 Year
  Sex: Female

DRUGS (7)
  1. METFORMIN [Concomitant]
     Active Substance: METFORMIN HYDROCHLORIDE
     Indication: HYPERINSULINISM
     Dosage: 2 TABLETS
     Route: 048
  2. DEURSIL [Concomitant]
     Active Substance: URSODIOL
     Dosage: 1 TABLET IN THE EVENING
     Route: 048
  3. SLOWMET [Concomitant]
     Active Substance: METFORMIN HYDROCHLORIDE
     Dosage: 1 TABLET AT LUNCH AND 1 TABLET AT DINNER
  4. NUVARING [Suspect]
     Active Substance: ETHINYL ESTRADIOL\ETONOGESTREL
     Indication: CONTRACEPTION
     Dosage: UNK
     Route: 067
     Dates: start: 2018
  5. FEEDCOLON [Concomitant]
     Dosage: 1 TABLET AT LUNCH AND 1 TABLET AT DINNER
     Route: 048
  6. FERTIFOL [Concomitant]
     Active Substance: FOLIC ACID
     Dosage: UNK UNK, QOD
  7. TIROSINT [Concomitant]
     Active Substance: LEVOTHYROXINE SODIUM
     Indication: THYROID FUNCTION TEST ABNORMAL
     Dosage: 50 MILLIGRAM, 1 VIAL DAILY

REACTIONS (5)
  - Abdominal pain [Unknown]
  - Unintended pregnancy [Recovered/Resolved]
  - Ectopic pregnancy with contraceptive device [Recovered/Resolved]
  - Treatment failure [Unknown]
  - Haemoperitoneum [Unknown]
